FAERS Safety Report 21270526 (Version 1)
Quarter: 2022Q3

REPORT INFORMATION
  Report Type: Spontaneous
  Country: US (occurrence: US)
  Receive Date: 20220830
  Receipt Date: 20220830
  Transmission Date: 20221026
  Serious: Yes (Hospitalization)
  Sender: FDA-Public Use
  Company Number: US-BOIRON-202200416

PATIENT
  Age: 10 Month
  Sex: Male

DRUGS (1)
  1. HOMEOPATHICS [Suspect]
     Active Substance: HOMEOPATHICS
     Indication: Product used for unknown indication

REACTIONS (7)
  - Brief resolved unexplained event [Unknown]
  - Unresponsive to stimuli [Unknown]
  - Pallor [Unknown]
  - Hypopnoea [Unknown]
  - Hypotonia [Unknown]
  - Drug hypersensitivity [Unknown]
  - Somnolence [Unknown]
